FAERS Safety Report 11125043 (Version 2)
Quarter: 2015Q2

REPORT INFORMATION
  Report Type: Spontaneous
  Country: PT (occurrence: PT)
  Receive Date: 20150520
  Receipt Date: 20150525
  Transmission Date: 20150821
  Serious: Yes (Hospitalization)
  Sender: FDA-Public Use
  Company Number: PT-JNJFOC-20150404910

PATIENT
  Age: 18 Year
  Sex: Male

DRUGS (1)
  1. SIMPONI [Suspect]
     Active Substance: GOLIMUMAB
     Indication: COLITIS ULCERATIVE
     Route: 058

REACTIONS (4)
  - Cytomegalovirus infection [Not Recovered/Not Resolved]
  - Pancytopenia [Unknown]
  - Colitis ulcerative [Recovering/Resolving]
  - Lymphopenia [Not Recovered/Not Resolved]
